FAERS Safety Report 20672309 (Version 2)
Quarter: 2022Q2

REPORT INFORMATION
  Report Type: Report from Study
  Country: CO (occurrence: CO)
  Receive Date: 20220405
  Receipt Date: 20220427
  Transmission Date: 20220720
  Serious: Yes (Disabling)
  Sender: FDA-Public Use
  Company Number: CO-ABBVIE-22K-036-4343140-00

PATIENT
  Sex: Male
  Weight: 84 kg

DRUGS (2)
  1. HUMIRA [Suspect]
     Active Substance: ADALIMUMAB
     Indication: Psoriatic arthropathy
     Route: 058
     Dates: start: 20210830, end: 20211220
  2. SILICIC ACID [Concomitant]
     Indication: Psoriatic arthropathy

REACTIONS (5)
  - Accident [Recovering/Resolving]
  - Gait disturbance [Recovering/Resolving]
  - Limb injury [Recovering/Resolving]
  - Arthralgia [Not Recovered/Not Resolved]
  - Drug ineffective [Unknown]

NARRATIVE: CASE EVENT DATE: 20210101
